FAERS Safety Report 12733397 (Version 1)
Quarter: 2016Q3

REPORT INFORMATION
  Report Type: Spontaneous
  Country: US (occurrence: US)
  Receive Date: 20160912
  Receipt Date: 20160912
  Transmission Date: 20161109
  Serious: No
  Sender: FDA-Public Use
  Company Number: None

PATIENT
  Age: 80 Year
  Sex: Female
  Weight: 130 kg

DRUGS (10)
  1. DURAGESIC [Concomitant]
     Active Substance: FENTANYL
  2. METOPROLOL. [Concomitant]
     Active Substance: METOPROLOL
  3. FENTANYL TRANSDERMAL SYSTEM [Suspect]
     Active Substance: FENTANYL
     Indication: ARTHRALGIA
     Dosage: FENTANYL TRANSDERMAL SYSTEM - TAKEN EVERY 72 HOURS
     Route: 062
     Dates: start: 2010
  4. METHIMAZOLE. [Concomitant]
     Active Substance: METHIMAZOLE
  5. DOCEPIN HCL [Concomitant]
  6. MAG [Concomitant]
  7. SIMVASTATIN. [Concomitant]
     Active Substance: SIMVASTATIN
  8. TRAMADOL. [Concomitant]
     Active Substance: TRAMADOL
  9. VITAMIN B12 [Concomitant]
     Active Substance: CYANOCOBALAMIN
  10. ALLOPURINOL. [Concomitant]
     Active Substance: ALLOPURINOL

REACTIONS (1)
  - Drug ineffective [None]

NARRATIVE: CASE EVENT DATE: 20160829
